FAERS Safety Report 16540373 (Version 1)
Quarter: 2019Q3

REPORT INFORMATION
  Report Type: Report from Study
  Country: None (occurrence: CA)
  Receive Date: 20190708
  Receipt Date: 20190708
  Transmission Date: 20191004
  Serious: Yes (Other)
  Sender: FDA-Public Use
  Company Number: CA-ABBVIE-19K-028-2844151-00

PATIENT
  Age: 48 Year
  Sex: Female

DRUGS (1)
  1. HUMIRA [Suspect]
     Active Substance: ADALIMUMAB
     Indication: COLITIS ULCERATIVE
     Route: 058
     Dates: start: 20170613

REACTIONS (5)
  - Post-traumatic neck syndrome [Unknown]
  - Road traffic accident [Recovered/Resolved]
  - Sternal fracture [Unknown]
  - Concussion [Unknown]
  - Contusion [Unknown]

NARRATIVE: CASE EVENT DATE: 201904
